FAERS Safety Report 8965622 (Version 1)
Quarter: 2012Q4

REPORT INFORMATION
  Report Type: Spontaneous
  Country: ES (occurrence: None)
  Receive Date: 20121205
  Receipt Date: 20121205
  Transmission Date: 20130627
  Serious: Yes (Other)
  Sender: FDA-Public Use
  Company Number: 2012VX005303

PATIENT

DRUGS (2)
  1. TIMOLOL MALEATE [Suspect]
     Indication: DEVELOPMENTAL GLAUCOMA
     Route: 064
  2. DORZOLAMIDE HYDROCHLORIDE (+) TIMOLOL MALEATE [Suspect]
     Indication: DEVELOPMENTAL GLAUCOMA
     Route: 064

REACTIONS (3)
  - Exposure during pregnancy [None]
  - Caesarean section [None]
  - Induced labour [None]
